FAERS Safety Report 5400792-9 (Version None)
Quarter: 2007Q3

REPORT INFORMATION
  Report Type: 
  Country: None (occurrence: None)
  Receive Date: 20070730
  Receipt Date: 20070718
  Transmission Date: 20080115
  Serious: Yes (Other)
  Sender: FDA-Public Use
  Company Number: US-PFIZER INC-2007060781

PATIENT
  Sex: Female
  Weight: 91.6 kg

DRUGS (11)
  1. CHANTIX [Interacting]
     Indication: SMOKING CESSATION THERAPY
  2. METFORMIN HCL [Suspect]
     Indication: DIABETES MELLITUS
  3. CYMBALTA [Interacting]
  4. NIASPAN [Concomitant]
  5. ZOCOR [Concomitant]
  6. PROPRANOLOL [Concomitant]
  7. SIMVASTATIN [Concomitant]
  8. MICARDIS [Concomitant]
  9. HYDROCODONE BITARTRATE [Concomitant]
  10. XANAX [Concomitant]
  11. CALCIUM CHLORIDE [Concomitant]

REACTIONS (9)
  - BLOOD GLUCOSE DECREASED [None]
  - BLOOD GLUCOSE INCREASED [None]
  - DRUG INTERACTION [None]
  - HEART RATE INCREASED [None]
  - MALAISE [None]
  - MENTAL IMPAIRMENT [None]
  - NAUSEA [None]
  - NEUROTRANSMITTER LEVEL ALTERED [None]
  - WEIGHT DECREASED [None]
